FAERS Safety Report 6426302-5 (Version None)
Quarter: 2009Q4

REPORT INFORMATION
  Report Type: 
  Country: None (occurrence: None)
  Receive Date: 20091104
  Receipt Date: 20091029
  Transmission Date: 20100525
  Serious: Yes (Other)
  Sender: FDA-Public Use
  Company Number: GB-ROCHE-665358

PATIENT
  Age: 58 Year
  Sex: Male

DRUGS (3)
  1. PEG-INTERFERON ALFA 2A (RO 25-8310) [Suspect]
     Indication: HEPATITIS C
     Route: 065
  2. RIBAVIRIN [Suspect]
     Indication: HEPATITIS C
     Route: 065
  3. BLINDED INVESTIGATIONAL DRUG [Suspect]
     Indication: HEPATITIS C
     Route: 048

REACTIONS (1)
  - LUNG NEOPLASM MALIGNANT [None]
